FAERS Safety Report 23681713 (Version 1)
Quarter: 2024Q1

REPORT INFORMATION
  Report Type: Spontaneous
  Country: US (occurrence: US)
  Receive Date: 20240328
  Receipt Date: 20240328
  Transmission Date: 20240410
  Serious: Yes (Life-Threatening, Hospitalization)
  Sender: FDA-Public Use
  Company Number: US-VIRTUS PHARMACEUTICALS, LLC-2024VTS00004

PATIENT
  Age: 15 Year
  Sex: Female

DRUGS (1)
  1. ALBUTEROL [Suspect]
     Active Substance: ALBUTEROL
     Dosage: 30 TABLETS
     Route: 048

REACTIONS (4)
  - Suicide attempt [Recovered/Resolved]
  - Myocardial ischaemia [Recovered/Resolved]
  - Intentional overdose [Recovered/Resolved]
  - Electrocardiogram change [Recovered/Resolved]
